FAERS Safety Report 25037149 (Version 1)
Quarter: 2025Q1

REPORT INFORMATION
  Report Type: Spontaneous
  Country: US (occurrence: US)
  Receive Date: 20250304
  Receipt Date: 20250304
  Transmission Date: 20250409
  Serious: Yes (Other)
  Sender: JOHNSON AND JOHNSON
  Company Number: US-JNJFOC-20250254145

PATIENT

DRUGS (2)
  1. STELARA [Suspect]
     Active Substance: USTEKINUMAB
     Indication: Crohn^s disease
     Route: 040
  2. STELARA [Suspect]
     Active Substance: USTEKINUMAB
     Route: 058

REACTIONS (7)
  - Crohn^s disease [Unknown]
  - Product dose omission issue [Unknown]
  - Needle issue [Unknown]
  - Influenza [Unknown]
  - Syringe issue [Unknown]
  - Product complaint [Unknown]
  - Off label use [Unknown]
